FAERS Safety Report 14371428 (Version 4)
Quarter: 2020Q2

REPORT INFORMATION
  Report Type: Spontaneous
  Country: ES (occurrence: ES)
  Receive Date: 20180110
  Receipt Date: 20200618
  Transmission Date: 20200713
  Serious: Yes (Life-Threatening, Hospitalization, Other)
  Sender: FDA-Public Use
  Company Number: ES-AUROBINDO-AUR-APL-2018-001234

PATIENT
  Age: 37 Year
  Sex: Female
  Weight: 88 kg

DRUGS (9)
  1. NEMEA [Suspect]
     Active Substance: CLOZAPINE
     Dosage: 400 MILLIGRAM, DAILY
     Route: 048
     Dates: start: 20140508, end: 20140912
  2. TOPIRAMATE. [Suspect]
     Active Substance: TOPIRAMATE
     Indication: PRODUCT USED FOR UNKNOWN INDICATION
     Dosage: 300 MILLIGRAM, ONCE A DAY
     Route: 048
     Dates: start: 2011, end: 20140915
  3. DIAZEPAM. [Concomitant]
     Active Substance: DIAZEPAM
     Indication: PRODUCT USED FOR UNKNOWN INDICATION
     Dosage: 10 MILLIGRAM, DAILY
     Route: 048
     Dates: start: 2001, end: 20140915
  4. ABILIFY [Suspect]
     Active Substance: ARIPIPRAZOLE
     Indication: PRODUCT USED FOR UNKNOWN INDICATION
     Dosage: 30 MILLIGRAM, DAILY
     Route: 048
     Dates: start: 2009, end: 20140915
  5. ARIPIPRAZOL AUROVITAS TABLETS EFG 5MG [Suspect]
     Active Substance: ARIPIPRAZOLE
     Indication: SCHIZOPHRENIFORM DISORDER
     Dosage: 30 MG, QD
     Route: 065
     Dates: start: 2009, end: 20140915
  6. SERDOLECT [Concomitant]
     Active Substance: SERTINDOLE
     Dosage: 24 MILLIGRAM, ONCE A DAY
     Route: 048
     Dates: start: 2013, end: 20140912
  7. NEMEA [Suspect]
     Active Substance: CLOZAPINE
     Indication: SCHIZOPHRENIFORM DISORDER
     Dosage: 200 MILLIGRAM, DAILY
     Route: 048
     Dates: start: 20140508, end: 20140912
  8. SERDOLECT [Concomitant]
     Active Substance: SERTINDOLE
     Indication: PRODUCT USED FOR UNKNOWN INDICATION
     Dosage: 12 MILLIGRAM, TWO TIMES A DAY
     Route: 048
     Dates: start: 2013, end: 20140912
  9. LITHIUM. [Concomitant]
     Active Substance: LITHIUM
     Indication: PRODUCT USED FOR UNKNOWN INDICATION
     Dosage: 400 MILLIGRAM, DAILY
     Route: 048
     Dates: start: 2011, end: 20140915

REACTIONS (1)
  - Agranulocytosis [Recovered/Resolved]

NARRATIVE: CASE EVENT DATE: 20140902
